FAERS Safety Report 18319323 (Version 1)
Quarter: 2020Q3

REPORT INFORMATION
  Report Type: Spontaneous
  Country: FR (occurrence: FR)
  Receive Date: 20200928
  Receipt Date: 20200928
  Transmission Date: 20201103
  Serious: Yes (Hospitalization)
  Sender: FDA-Public Use
  Company Number: FR-TEVA-2020-FR-1831549

PATIENT
  Age: 30 Year
  Sex: Female

DRUGS (4)
  1. COUMADINE 10 MG, COMPRIME SECABLE [Concomitant]
  2. ROACCUTANE 20 MG, CAPSULE MOLLE [Suspect]
     Active Substance: ISOTRETINOIN
     Indication: ACNE
     Dosage: 1 DOSAGE FORMS
     Route: 048
     Dates: start: 20200525, end: 20200715
  3. ATORVASTATINE [Suspect]
     Active Substance: ATORVASTATIN
     Indication: HYPERCHOLESTEROLAEMIA
     Dosage: 10MG
     Route: 048
     Dates: start: 20200625, end: 20200715
  4. ERYTHROMYCINE [Suspect]
     Active Substance: ERYTHROMYCIN
     Indication: ACNE
     Dosage: 1000MG
     Route: 048
     Dates: start: 20200625, end: 20200715

REACTIONS (1)
  - Liver injury [Recovered/Resolved]

NARRATIVE: CASE EVENT DATE: 20200715
